FAERS Safety Report 9505819 (Version 1)
Quarter: 2013Q1

REPORT INFORMATION
  Report Type: Spontaneous
  Country: US (occurrence: None)
  Receive Date: 20130214
  Receipt Date: 20130214
  Transmission Date: 20140127
  Serious: Yes (Other)
  Sender: FDA-Public Use
  Company Number: 1206USA03915

PATIENT
  Age: 49 Year
  Sex: Male
  Weight: 86 kg

DRUGS (1)
  1. PROPECIA [Suspect]
     Dates: start: 20040101, end: 20110101

REACTIONS (1)
  - Sexual dysfunction [None]
